FAERS Safety Report 23156540 (Version 1)
Quarter: 2023Q4

REPORT INFORMATION
  Report Type: Spontaneous
  Country: US (occurrence: US)
  Receive Date: 20231107
  Receipt Date: 20231107
  Transmission Date: 20240110
  Serious: No
  Sender: FDA-Public Use
  Company Number: US-COLLEGIUM PHARMACEUTICAL, INC.-20230900811

PATIENT
  Age: 65 Year
  Sex: Female

DRUGS (2)
  1. BELBUCA [Suspect]
     Active Substance: BUPRENORPHINE HYDROCHLORIDE
     Indication: Pain
     Dosage: 150 MICROGRAM, UNKNOWN
     Route: 002
     Dates: start: 2020
  2. BELBUCA [Suspect]
     Active Substance: BUPRENORPHINE HYDROCHLORIDE
     Dosage: 300 MICROGRAM, UNKNOWN
     Route: 002
     Dates: end: 202308

REACTIONS (3)
  - Toothache [Unknown]
  - Hyperaesthesia teeth [Unknown]
  - Dental caries [Unknown]
